FAERS Safety Report 20665582 (Version 1)
Quarter: 2022Q2

REPORT INFORMATION
  Report Type: Spontaneous
  Country: CN (occurrence: CN)
  Receive Date: 20220402
  Receipt Date: 20220402
  Transmission Date: 20220721
  Serious: Yes (Death, Other)
  Sender: FDA-Public Use
  Company Number: CN-AMGEN-CHNSP2022056138

PATIENT
  Age: 30 Year
  Sex: Male

DRUGS (1)
  1. BLINATUMOMAB [Suspect]
     Active Substance: BLINATUMOMAB
     Indication: B precursor type acute leukaemia
     Route: 065

REACTIONS (10)
  - Acute lymphocytic leukaemia recurrent [Fatal]
  - Cytokine release syndrome [Unknown]
  - Neutropenia [Recovered/Resolved]
  - B-cell aplasia [Unknown]
  - Anaemia [Unknown]
  - Diarrhoea [Unknown]
  - Pyrexia [Recovered/Resolved]
  - Infection [Unknown]
  - Hypocalcaemia [Unknown]
  - Activated partial thromboplastin time prolonged [Unknown]
